FAERS Safety Report 7369629-5 (Version None)
Quarter: 2011Q1

REPORT INFORMATION
  Report Type: 
  Country: None (occurrence: None)
  Receive Date: 20110315
  Receipt Date: 20110301
  Transmission Date: 20110831
  Serious: Yes (Other)
  Sender: FDA-Public Use
  Company Number: 1000019221

PATIENT
  Sex: Female

DRUGS (4)
  1. CITALOPRAM (CITALOPRAM HYDROBROMIDE) [Suspect]
     Indication: DEPRESSION
     Dosage: (1 IN 1 D),ORAL
     Route: 048
  2. CITALOPRAM (CITALOPRAM HYDROBROMIDE) [Suspect]
     Indication: DEPRESSION
     Dosage: 120 MG (120 MG,1 IN 1 D),ORAL ; 60 MG (60 MG,1 IN 1 D),ORAL
     Route: 048
     Dates: start: 20110201
  3. CITALOPRAM (CITALOPRAM HYDROBROMIDE) [Suspect]
     Indication: DEPRESSION
     Dosage: 120 MG (120 MG,1 IN 1 D),ORAL ; 60 MG (60 MG,1 IN 1 D),ORAL
     Route: 048
     Dates: start: 20110201, end: 20110201
  4. PAIN KILLERS (NOS) (PAIN KILLERS) (PAIN KILLERS) [Concomitant]

REACTIONS (3)
  - ANXIETY [None]
  - FEELING HOT [None]
  - ACCIDENTAL OVERDOSE [None]
